FAERS Safety Report 4570432-X (Version None)
Quarter: 2005Q1

REPORT INFORMATION
  Report Type: 
  Country: None (occurrence: None)
  Receive Date: 20050204
  Receipt Date: 20050125
  Transmission Date: 20050727
  Serious: Yes (Other)
  Sender: FDA-Public Use
  Company Number: PA-ABBOTT-05P-125-0288857-00

PATIENT
  Sex: Male
  Weight: 98.972 kg

DRUGS (4)
  1. REDUCTIL 10MG [Suspect]
     Indication: OVERWEIGHT
     Route: 048
  2. REDUCTIL 10MG [Suspect]
  3. MEBENDAZOLE [Concomitant]
     Indication: DRUG USE FOR UNKNOWN INDICATION
  4. MEBENDAZOLE [Concomitant]
     Dosage: REPEATED TREATMENT THAT BEGAN 2 WEEKS AFTER ORIGINAL TREATMENT

REACTIONS (2)
  - ABDOMINAL PAIN UPPER [None]
  - EOSINOPHILIA [None]
